FAERS Safety Report 4703055-X (Version None)
Quarter: 2005Q2

REPORT INFORMATION
  Report Type: 
  Country: None (occurrence: None)
  Receive Date: 20050628
  Receipt Date: 20050628
  Transmission Date: 20051028
  Serious: Yes (Hospitalization)
  Sender: FDA-Public Use
  Company Number: None

PATIENT
  Age: 47 Year
  Sex: Male
  Weight: 78.6 kg

DRUGS (1)
  1. VANCOMYCIN [Suspect]
     Indication: OSTEOMYELITIS
     Dosage: 1 G Q 12 HR IV
     Route: 042
     Dates: start: 20050428, end: 20050526

REACTIONS (5)
  - IMMUNE SYSTEM DISORDER [None]
  - MALAISE [None]
  - NEUTROPENIA [None]
  - NIGHT SWEATS [None]
  - PYREXIA [None]
